FAERS Safety Report 21116339 (Version 2)
Quarter: 2022Q3

REPORT INFORMATION
  Report Type: Report from Study
  Country: AR (occurrence: AR)
  Receive Date: 20220721
  Receipt Date: 20220808
  Transmission Date: 20221027
  Serious: Yes (Other)
  Sender: FDA-Public Use
  Company Number: AR-ABBVIE-22K-007-4476710-00

PATIENT
  Age: 20 Year
  Sex: Male

DRUGS (1)
  1. HUMIRA [Suspect]
     Active Substance: ADALIMUMAB
     Indication: Psoriasis
     Route: 058
     Dates: start: 20200311

REACTIONS (9)
  - Blindness [Unknown]
  - Limb injury [Unknown]
  - Wound haemorrhage [Unknown]
  - Scratch [Not Recovered/Not Resolved]
  - Swelling face [Unknown]
  - Hypersensitivity [Recovering/Resolving]
  - Influenza [Unknown]
  - Infection [Not Recovered/Not Resolved]
  - Psoriasis [Not Recovered/Not Resolved]

NARRATIVE: CASE EVENT DATE: 20220718
